FAERS Safety Report 7251957-5 (Version None)
Quarter: 2011Q1

REPORT INFORMATION
  Report Type: 
  Country: None (occurrence: None)
  Receive Date: 20110128
  Receipt Date: 20100106
  Transmission Date: 20110831
  Serious: No
  Sender: FDA-Public Use
  Company Number: US-ABBOTT-09P-163-0615821-00

PATIENT
  Sex: Female
  Weight: 108.96 kg

DRUGS (1)
  1. HUMIRA [Suspect]
     Indication: CROHN'S DISEASE
     Dosage: -SEP-2009
     Route: 058
     Dates: start: 20090901

REACTIONS (3)
  - ABDOMINAL PAIN [None]
  - BOWEL MOVEMENT IRREGULARITY [None]
  - HEADACHE [None]
